FAERS Safety Report 9536172 (Version 1)
Quarter: 2013Q3

REPORT INFORMATION
  Report Type: Spontaneous
  Country: US (occurrence: None)
  Receive Date: 20130917
  Receipt Date: 20130917
  Transmission Date: 20140515
  Serious: No
  Sender: FDA-Public Use
  Company Number: None

PATIENT
  Age: 69 Year
  Sex: Female
  Weight: 81.65 kg

DRUGS (9)
  1. RESTASIS [Suspect]
     Indication: DRY EYE
     Dosage: 1 DROP PER EYE TWICE DAILY IN EYES
     Route: 047
     Dates: start: 20130719, end: 20130806
  2. COZAAR [Concomitant]
  3. VALIUM [Concomitant]
  4. LEFT BREAST PROTHESIS ( SILICONE) [Concomitant]
  5. FISH OIL [Concomitant]
  6. VIT. E [Concomitant]
  7. ASPIRIN [Concomitant]
  8. GLUCOSAMINE [Concomitant]
  9. VIT D [Concomitant]

REACTIONS (2)
  - Vision blurred [None]
  - Halo vision [None]
